FAERS Safety Report 8444113-6 (Version None)
Quarter: 2012Q2

REPORT INFORMATION
  Report Type: 
  Country: None (occurrence: None)
  Receive Date: 20120618
  Receipt Date: 20120606
  Transmission Date: 20120825
  Serious: Yes (Other)
  Sender: FDA-Public Use
  Company Number: US-COVIDIEN/TYCO HEALTHCARE/MALLINCKRODT-T201202501

PATIENT
  Age: 39 Year

DRUGS (1)
  1. METHADOSE [Suspect]
     Indication: WITHDRAWAL SYNDROME
     Dosage: 10.3 MG
     Route: 030

REACTIONS (2)
  - BRONCHOSPASM [None]
  - OXYGEN SATURATION DECREASED [None]
